FAERS Safety Report 8359418-7 (Version None)
Quarter: 2012Q2

REPORT INFORMATION
  Report Type: 
  Country: None (occurrence: None)
  Receive Date: 20120514
  Receipt Date: 20120514
  Transmission Date: 20120825
  Serious: Yes (Other)
  Sender: FDA-Public Use
  Company Number: None

PATIENT
  Age: 49 Year
  Sex: Female
  Weight: 68.0396 kg

DRUGS (2)
  1. AMOXICILLIN [Suspect]
     Indication: ENDODONTIC PROCEDURE
     Dosage: ONE CAPSULE 3X/DAY PO
     Route: 048
     Dates: start: 20120504, end: 20120511
  2. AMOXICILLIN [Suspect]
     Indication: BACTERIAL INFECTION
     Dosage: ONE CAPSULE 3X/DAY PO
     Route: 048
     Dates: start: 20120504, end: 20120511

REACTIONS (10)
  - ANXIETY [None]
  - CHILLS [None]
  - NERVOUSNESS [None]
  - DISORIENTATION [None]
  - FATIGUE [None]
  - ABNORMAL DREAMS [None]
  - INSOMNIA [None]
  - CONFUSIONAL STATE [None]
  - VERTIGO [None]
  - NAUSEA [None]
